FAERS Safety Report 8557463-X (Version None)
Quarter: 2012Q3

REPORT INFORMATION
  Report Type: 
  Country: None (occurrence: None)
  Receive Date: 20120801
  Receipt Date: 20120730
  Transmission Date: 20120928
  Serious: No
  Sender: FDA-Public Use
  Company Number: US-B.I. PHARMACEUTICALS,INC./RIDGEFIELD-2012-BP-14234BP

PATIENT
  Sex: Female

DRUGS (9)
  1. ANTIVERT [Concomitant]
     Dosage: 25 MG
     Route: 048
     Dates: start: 20100706
  2. CALCIUM + D [Concomitant]
     Route: 048
     Dates: start: 20100427
  3. DILTIAZEM [Concomitant]
     Indication: HYPERTENSION
     Dosage: 240 MG
     Route: 048
     Dates: start: 20111109
  4. COUMADIN [Concomitant]
     Dosage: 4 MG
     Route: 048
     Dates: start: 20120313
  5. PRADAXA [Suspect]
     Indication: ATRIAL FIBRILLATION
     Dosage: 300 MG
     Route: 048
     Dates: start: 20120314
  6. LASIX [Concomitant]
     Dosage: 10 MG
     Route: 048
     Dates: start: 20120110
  7. NASONEX [Concomitant]
     Route: 045
     Dates: start: 20100427
  8. FUROSEMIDE [Concomitant]
     Indication: HYPERTENSION
     Dosage: 10 MG
     Route: 048
  9. VALIUM [Concomitant]
     Route: 048
     Dates: start: 20120313

REACTIONS (4)
  - URINE ABNORMALITY [None]
  - URINARY TRACT INFECTION [None]
  - RESTLESSNESS [None]
  - WEIGHT DECREASED [None]
